FAERS Safety Report 4721439-0 (Version None)
Quarter: 2005Q3

REPORT INFORMATION
  Report Type: 
  Country: None (occurrence: None)
  Receive Date: 20050721
  Receipt Date: 20040907
  Transmission Date: 20060218
  Serious: No
  Sender: FDA-Public Use
  Company Number: US-BRISTOL-MYERS SQUIBB COMPANY-12694295

PATIENT
  Age: 43 Year
  Sex: Male
  Weight: 145 kg

DRUGS (7)
  1. COUMADIN [Suspect]
     Indication: THROMBOSIS
     Dosage: 20 MG AND 25 MG ALTERNATING DAILY
     Route: 048
     Dates: start: 19940101
  2. COUMADIN [Suspect]
     Indication: STRUCK BY LIGHTNING
     Dosage: 20 MG AND 25 MG ALTERNATING DAILY
     Route: 048
     Dates: start: 19940101
  3. EFFEXOR [Concomitant]
  4. METHADONE HCL [Concomitant]
  5. LASIX [Concomitant]
  6. KEFLEX [Concomitant]
  7. LOVENOX [Concomitant]

REACTIONS (5)
  - CONFUSIONAL STATE [None]
  - DISTURBANCE IN ATTENTION [None]
  - DIZZINESS [None]
  - DRUG INEFFECTIVE [None]
  - MEMORY IMPAIRMENT [None]
